FAERS Safety Report 6870967-0 (Version None)
Quarter: 2010Q3

REPORT INFORMATION
  Report Type: 
  Country: None (occurrence: None)
  Receive Date: 20100723
  Receipt Date: 20100715
  Transmission Date: 20110219
  Serious: Yes (Disabling)
  Sender: FDA-Public Use
  Company Number: FR-BRISTOL-MYERS SQUIBB COMPANY-15205107

PATIENT
  Age: 60 Year
  Sex: Male

DRUGS (6)
  1. ERBITUX [Suspect]
     Indication: TONGUE NEOPLASM MALIGNANT STAGE UNSPECIFIED
     Dosage: 26MAR10:(4TH COURSE)
     Route: 042
     Dates: start: 20100121, end: 20100401
  2. SOLUPRED [Suspect]
     Route: 042
  3. CARBOPLATIN [Concomitant]
     Indication: TONGUE NEOPLASM MALIGNANT STAGE UNSPECIFIED
     Dosage: SOLUTION FOR INJECTION
     Route: 042
  4. AMITRIPTYLINE HCL [Concomitant]
     Indication: NEURALGIA
     Dosage: ON EVENING
     Route: 048
  5. ORAMORPH SR [Concomitant]
     Dosage: 20MG/L
     Route: 048
  6. DURAGESIC-100 [Concomitant]
     Route: 062

REACTIONS (1)
  - TENDON RUPTURE [None]
